FAERS Safety Report 18250171 (Version 1)
Quarter: 2020Q3

REPORT INFORMATION
  Report Type: Spontaneous
  Country: US (occurrence: US)
  Receive Date: 20200909
  Receipt Date: 20200909
  Transmission Date: 20201103
  Serious: Yes (Hospitalization, Disabling, Other)
  Sender: FDA-Public Use
  Company Number: US-PURDUE-USA-2020-0165380

PATIENT
  Age: 19 Year
  Sex: Female

DRUGS (1)
  1. OXYCONTIN [Suspect]
     Active Substance: OXYCODONE HYDROCHLORIDE
     Indication: PAIN
     Dosage: UNK
     Route: 048

REACTIONS (8)
  - Disability [Not Recovered/Not Resolved]
  - Overdose [Unknown]
  - Drug abuse [Unknown]
  - Unevaluable event [Unknown]
  - Drug dependence [Unknown]
  - Brain injury [Not Recovered/Not Resolved]
  - Developmental delay [Unknown]
  - Learning disability [Unknown]
